FAERS Safety Report 21378446 (Version 1)
Quarter: 2022Q3

REPORT INFORMATION
  Report Type: Report from Study
  Country: CN (occurrence: None)
  Receive Date: 20220927
  Receipt Date: 20220927
  Transmission Date: 20221027
  Serious: Yes (Hospitalization)
  Sender: FDA-Public Use
  Company Number: 2022A326085

PATIENT
  Age: 67 Year
  Sex: Female
  Weight: 48.3 kg

DRUGS (4)
  1. OSIMERTINIB MESYLATE [Suspect]
     Active Substance: OSIMERTINIB MESYLATE
     Indication: Lung adenocarcinoma
     Dosage: 80 MG, QD, PER 21-DAY CYCLE
     Route: 048
     Dates: start: 20220826, end: 20220908
  2. OSIMERTINIB MESYLATE [Suspect]
     Active Substance: OSIMERTINIB MESYLATE
     Indication: Lung adenocarcinoma
     Dosage: 80 MG, QD, PER 21-DAY CYCLE
     Route: 048
     Dates: start: 20220913
  3. PELCITOCLAX [Suspect]
     Active Substance: PELCITOCLAX
     Indication: Lung adenocarcinoma
     Dosage: 160 MG, WEEKLY, PER 21-DAY CYCLE
     Route: 042
     Dates: start: 20220826, end: 20220902
  4. GLYCERIN [Concomitant]
     Active Substance: GLYCERIN
     Indication: Constipation
     Dosage: 20ML, TOPICAL, ONCE A DAY (QD)
     Route: 061
     Dates: start: 20220828

REACTIONS (1)
  - Lipase increased [Recovering/Resolving]

NARRATIVE: CASE EVENT DATE: 20220908
